FAERS Safety Report 9363745 (Version 1)
Quarter: 2013Q2

REPORT INFORMATION
  Report Type: Report from Study
  Country: US (occurrence: US)
  Receive Date: 20130624
  Receipt Date: 20130624
  Transmission Date: 20140414
  Serious: Yes (Death)
  Sender: FDA-Public Use
  Company Number: US-ASTELLAS-2013US006519

PATIENT
  Sex: Female

DRUGS (2)
  1. ERLOTINIB TABLET [Suspect]
     Indication: HODGKIN^S DISEASE
     Dosage: UNK
     Route: 065
  2. ERLOTINIB TABLET [Suspect]
     Indication: NON-HODGKIN^S LYMPHOMA

REACTIONS (2)
  - Off label use [Unknown]
  - Death [Fatal]
